FAERS Safety Report 23500318 (Version 1)
Quarter: 2024Q1

REPORT INFORMATION
  Report Type: Spontaneous
  Country: BR (occurrence: BR)
  Receive Date: 20240208
  Receipt Date: 20240208
  Transmission Date: 20240409
  Serious: Yes (Other)
  Sender: FDA-Public Use
  Company Number: BR-ABBOTT-2024A-1377134

PATIENT
  Sex: Male
  Weight: 104 kg

DRUGS (7)
  1. DEPAKOTE [Suspect]
     Active Substance: DIVALPROEX SODIUM
     Indication: Bipolar disorder
     Dosage: TAKING ONE OF 250MG IN THE MORNING AND ONE OF 500MG AT NIGHT
     Route: 048
  2. DEPAKOTE [Suspect]
     Active Substance: DIVALPROEX SODIUM
     Indication: Bipolar disorder
     Dosage: 2 TABLETS OF 500MG
     Route: 048
  3. DEPAKOTE [Suspect]
     Active Substance: DIVALPROEX SODIUM
     Indication: Bipolar disorder
     Dosage: 3 TABLETS OF 500MG A DAY AND THEN STARTED DECREASING THE DOSE
     Route: 048
     Dates: start: 202301
  4. DIVALPROEX SODIUM [Suspect]
     Active Substance: DIVALPROEX SODIUM
     Indication: Bipolar disorder
     Dosage: TAKING ONE OF 250MG IN THE MORNING AND ONE OF 500MG AT NIGHT
     Route: 048
  5. DIVALPROEX SODIUM [Suspect]
     Active Substance: DIVALPROEX SODIUM
     Indication: Bipolar disorder
     Dosage: 3 TABLETS OF 500MG A DAY AND THEN STARTED DECREASING THE DOSE
     Route: 048
     Dates: start: 202301
  6. DIVALPROEX SODIUM [Suspect]
     Active Substance: DIVALPROEX SODIUM
     Indication: Bipolar disorder
     Dosage: 2 TABLETS OF 500MG
     Route: 048
  7. QUETIAPINE [Suspect]
     Active Substance: QUETIAPINE
     Indication: Product used for unknown indication
     Route: 065

REACTIONS (10)
  - Pulmonary fibrosis [Recovering/Resolving]
  - Secretion discharge [Recovering/Resolving]
  - Malaise [Recovering/Resolving]
  - Pneumonia [Unknown]
  - Dizziness [Recovering/Resolving]
  - Cough [Recovering/Resolving]
  - Increased upper airway secretion [Recovered/Resolved]
  - Choking [Recovering/Resolving]
  - Inappropriate schedule of product administration [Unknown]
  - Oxygen saturation decreased [Recovering/Resolving]
